FAERS Safety Report 9500211 (Version 1)
Quarter: 2013Q3

REPORT INFORMATION
  Report Type: Spontaneous
  Country: FR (occurrence: FR)
  Receive Date: 20130905
  Receipt Date: 20130905
  Transmission Date: 20140515
  Serious: Yes (Other)
  Sender: FDA-Public Use
  Company Number: FR-MYLANLABS-2013S1018847

PATIENT
  Age: 70 Year
  Sex: Female

DRUGS (9)
  1. METHOTREXATE MYLAN [Suspect]
     Indication: PRODUCT USED FOR UNKNOWN INDICATION
     Route: 042
     Dates: start: 20130619, end: 20130619
  2. METHOTREXATE MYLAN [Suspect]
     Indication: PRODUCT USED FOR UNKNOWN INDICATION
     Route: 042
     Dates: start: 20130619, end: 20130619
  3. AUGMENTIN [Suspect]
     Indication: PRODUCT USED FOR UNKNOWN INDICATION
     Route: 042
     Dates: start: 20130618, end: 20130708
  4. INEXIUM [Suspect]
     Indication: PRODUCT USED FOR UNKNOWN INDICATION
     Route: 048
  5. ZOPHREN [Concomitant]
     Indication: PRODUCT USED FOR UNKNOWN INDICATION
  6. ACUPAN [Concomitant]
  7. SOLUMEDROL [Concomitant]
  8. MABTHERA [Concomitant]
  9. CALCIUM FOLINATE [Concomitant]

REACTIONS (1)
  - Chemotherapeutic drug level above therapeutic [Recovered/Resolved]
